FAERS Safety Report 23129515 (Version 1)
Quarter: 2023Q4

REPORT INFORMATION
  Report Type: Spontaneous
  Country: GR (occurrence: GR)
  Receive Date: 20231031
  Receipt Date: 20231031
  Transmission Date: 20240110
  Serious: Yes (Life-Threatening, Other)
  Sender: FDA-Public Use
  Company Number: None

PATIENT
  Age: 38 Year
  Sex: Male
  Weight: 70 kg

DRUGS (10)
  1. SIMVASTATIN [Suspect]
     Active Substance: SIMVASTATIN
     Indication: Hypercholesterolaemia
     Route: 065
     Dates: start: 20230510, end: 20230525
  2. SIMVASTATIN [Suspect]
     Active Substance: SIMVASTATIN
     Indication: Coronary artery disease
  3. ROSUVASTATIN [Suspect]
     Active Substance: ROSUVASTATIN
     Indication: Coronary artery disease
     Route: 065
     Dates: start: 20220921, end: 20221009
  4. ROSUVASTATIN [Suspect]
     Active Substance: ROSUVASTATIN
     Indication: Hypercholesterolaemia
  5. ATORVASTATIN [Suspect]
     Active Substance: ATORVASTATIN
     Indication: Coronary artery disease
     Dosage: ATORVASTATIN 40MG
     Route: 065
     Dates: start: 20220707, end: 20220831
  6. ATORVASTATIN [Suspect]
     Active Substance: ATORVASTATIN
     Indication: Hypercholesterolaemia
  7. PITAVASTATIN [Suspect]
     Active Substance: PITAVASTATIN
     Indication: Coronary artery disease
     Route: 065
     Dates: start: 20230113, end: 20230206
  8. PITAVASTATIN [Suspect]
     Active Substance: PITAVASTATIN
     Indication: Hypercholesterolaemia
  9. ATORVASTATIN\EZETIMIBE [Suspect]
     Active Substance: ATORVASTATIN\EZETIMIBE
     Indication: Hypercholesterolaemia
     Dosage: ATORVASTATIN 20MG/ 10MG EZETIMIBE
     Route: 065
     Dates: start: 20220901, end: 20220913
  10. ATORVASTATIN\EZETIMIBE [Suspect]
     Active Substance: ATORVASTATIN\EZETIMIBE
     Indication: Coronary artery disease

REACTIONS (3)
  - Gamma-glutamyltransferase [Unknown]
  - Alanine aminotransferase increased [Unknown]
  - Aspartate aminotransferase increased [Unknown]
